FAERS Safety Report 7539754-4 (Version None)
Quarter: 2011Q2

REPORT INFORMATION
  Report Type: 
  Country: None (occurrence: None)
  Receive Date: 20110610
  Receipt Date: 20110531
  Transmission Date: 20111010
  Serious: Yes (Death, Hospitalization)
  Sender: FDA-Public Use
  Company Number: PHHY2011MX47614

PATIENT
  Sex: Female

DRUGS (3)
  1. BRONCHODILATORS [Concomitant]
     Indication: CHRONIC OBSTRUCTIVE PULMONARY DISEASE
  2. OXYGEN [Concomitant]
     Indication: CHRONIC OBSTRUCTIVE PULMONARY DISEASE
  3. DIOVAN [Suspect]
     Indication: HYPERTENSION
     Dosage: 1 DF (160/10 MG) PER DAY
     Dates: start: 20030101, end: 20061225

REACTIONS (4)
  - CHRONIC OBSTRUCTIVE PULMONARY DISEASE [None]
  - CARDIAC FAILURE [None]
  - PNEUMONIA [None]
  - CEREBROVASCULAR ACCIDENT [None]
